FAERS Safety Report 7485049-7 (Version None)
Quarter: 2011Q2

REPORT INFORMATION
  Report Type: 
  Country: None (occurrence: None)
  Receive Date: 20110517
  Receipt Date: 20101111
  Transmission Date: 20111010
  Serious: No
  Sender: FDA-Public Use
  Company Number: US-BAYER-2010-002342

PATIENT
  Sex: Female

DRUGS (1)
  1. FINACEA [Suspect]
     Indication: SKIN DISORDER
     Dosage: UNK
     Dates: start: 20101001

REACTIONS (1)
  - RASH [None]
